FAERS Safety Report 19511661 (Version 1)
Quarter: 2021Q3

REPORT INFORMATION
  Report Type: Spontaneous
  Country: CN (occurrence: CN)
  Receive Date: 20210709
  Receipt Date: 20210709
  Transmission Date: 20211014
  Serious: Yes (Other)
  Sender: FDA-Public Use
  Company Number: CN-ROCHE-2864357

PATIENT
  Age: 42 Year
  Sex: Female
  Weight: 60 kg

DRUGS (9)
  1. GAZYVA [Suspect]
     Active Substance: OBINUTUZUMAB
     Indication: FOLLICULAR LYMPHOMA
     Dosage: ON DAY 1, 8, 15 IN THE FIRST CYCLE, ON DAY 1 IN THE 2TH?8TH CYCLE, AND ON DAY 1 EVERY 2 CYCLES AFTER
     Route: 065
     Dates: start: 202004
  2. BENDAMUSTINE [Concomitant]
     Active Substance: BENDAMUSTINE
     Indication: FOLLICULAR LYMPHOMA
     Dosage: ON 17 SEP 2019 AND 08 OCT 2019, RB CHEMOTHERAPY, ON DAY 1?2
  3. MABTHERA [Suspect]
     Active Substance: RITUXIMAB
     Dosage: ON 17 SEP 2019 AND 08 OCT 2019, RB CHEMOTHERAPY, ON DAY 1
     Route: 065
  4. CYCLOPHOSPHAMIDE. [Concomitant]
     Active Substance: CYCLOPHOSPHAMIDE
     Indication: FOLLICULAR LYMPHOMA
     Dosage: RCHOP CHEMOTHERAPY, ON DAY 1
     Dates: start: 20190610, end: 20190812
  5. DOXORUBICIN [Concomitant]
     Active Substance: DOXORUBICIN
     Indication: FOLLICULAR LYMPHOMA
     Dosage: RCHOP CHEMOTHERAPY, ON DAY 1
     Dates: start: 20190610, end: 20190812
  6. ZANUBRUTINIB [Concomitant]
     Active Substance: ZANUBRUTINIB
     Indication: FOLLICULAR LYMPHOMA
     Dosage: 28 DAYS AS A CYCLE
     Route: 048
     Dates: start: 202004
  7. VINDESINE [Concomitant]
     Active Substance: VINDESINE
     Indication: FOLLICULAR LYMPHOMA
     Dosage: RCHOP CHEMOTHERAPY, ON DAY 1
     Dates: start: 20190610, end: 20190812
  8. PREDNISONE. [Concomitant]
     Active Substance: PREDNISONE
     Indication: FOLLICULAR LYMPHOMA
     Dosage: RCHOP CHEMOTHERAPY, ON DAY 1?5
     Dates: start: 20190610, end: 20190812
  9. MABTHERA [Suspect]
     Active Substance: RITUXIMAB
     Indication: FOLLICULAR LYMPHOMA
     Dosage: RCHOP CHEMOTHERAPY, ON DAY 0
     Route: 065
     Dates: start: 20190610, end: 20190812

REACTIONS (11)
  - White blood cell count decreased [Recovering/Resolving]
  - Platelet count decreased [Recovering/Resolving]
  - Localised oedema [Recovering/Resolving]
  - Weight increased [Not Recovered/Not Resolved]
  - Myelosuppression [Unknown]
  - Urinary tract infection [Recovering/Resolving]
  - Laryngeal discomfort [Recovering/Resolving]
  - Anaemia [Not Recovered/Not Resolved]
  - Pruritus [Recovering/Resolving]
  - Constipation [Recovering/Resolving]
  - Haemorrhage [Not Recovered/Not Resolved]

NARRATIVE: CASE EVENT DATE: 20200402
